FAERS Safety Report 10085158 (Version 1)
Quarter: 2014Q2

REPORT INFORMATION
  Report Type: Spontaneous
  Country: AR (occurrence: AR)
  Receive Date: 20140417
  Receipt Date: 20140417
  Transmission Date: 20141212
  Serious: Yes (Other)
  Sender: FDA-Public Use
  Company Number: AR-PFIZER INC-2014106774

PATIENT
  Age: 7 Year
  Sex: Male

DRUGS (1)
  1. BENEFIX [Suspect]
     Indication: FACTOR IX DEFICIENCY
     Dosage: 1500 IU, WEEKLY
     Dates: start: 20070201

REACTIONS (2)
  - Haemorrhage [Recovering/Resolving]
  - Haematoma [Recovering/Resolving]
